FAERS Safety Report 7776981-5 (Version None)
Quarter: 2011Q3

REPORT INFORMATION
  Report Type: 
  Country: None (occurrence: None)
  Receive Date: 20110923
  Receipt Date: 20110923
  Transmission Date: 20111222
  Serious: Yes (Other)
  Sender: FDA-Public Use
  Company Number: None

PATIENT
  Age: 43 Year
  Sex: Male

DRUGS (1)
  1. TEMODAR [Suspect]
     Dosage: 250 MG DAILY PO
     Route: 048
     Dates: start: 20110628, end: 20110819

REACTIONS (4)
  - NAIL DISORDER [None]
  - RASH [None]
  - MEMORY IMPAIRMENT [None]
  - DRY SKIN [None]
